FAERS Safety Report 24170826 (Version 2)
Quarter: 2024Q3

REPORT INFORMATION
  Report Type: Spontaneous
  Country: JP (occurrence: JP)
  Receive Date: 20240805
  Receipt Date: 20240807
  Transmission Date: 20241017
  Serious: Yes (Death, Other)
  Sender: IPSEN
  Company Number: JP-SERVIER-S24009586

PATIENT

DRUGS (2)
  1. ONIVYDE [Suspect]
     Active Substance: IRINOTECAN HYDROCHLORIDE
     Indication: Pancreatic carcinoma
     Dosage: UNK
     Route: 065
  2. FLUOROURACIL [Concomitant]
     Active Substance: FLUOROURACIL
     Indication: Pancreatic carcinoma
     Dosage: UNK
     Route: 065

REACTIONS (8)
  - Aneurysm ruptured [Fatal]
  - Portal vein thrombosis [Unknown]
  - Lymphatic fistula [Unknown]
  - Pancreatic fistula [Unknown]
  - Pancreatic carcinoma recurrent [Unknown]
  - Metastases to abdominal wall [Unknown]
  - Metastases to liver [Unknown]
  - Diarrhoea [Unknown]
